FAERS Safety Report 23801559 (Version 3)
Quarter: 2024Q3

REPORT INFORMATION
  Report Type: Spontaneous
  Country: US (occurrence: US)
  Receive Date: 20240430
  Receipt Date: 20240812
  Transmission Date: 20241017
  Serious: Yes (Hospitalization, Other)
  Sender: BRISTOL MYERS SQUIBB
  Company Number: US-BRISTOL-MYERS SQUIBB COMPANY-2024-067606

PATIENT
  Age: 89 Year
  Sex: Female
  Weight: 38.56 kg

DRUGS (1)
  1. REVLIMID [Suspect]
     Active Substance: LENALIDOMIDE
     Indication: Plasma cell myeloma
     Dosage: 10MG CAPSULE DAILY FOR 3 WEEKS ON THEN 1 WEEK OFF
     Route: 048

REACTIONS (4)
  - Full blood count decreased [Recovering/Resolving]
  - Intestinal obstruction [Recovering/Resolving]
  - White blood cell count decreased [Not Recovered/Not Resolved]
  - Drug ineffective [Unknown]

NARRATIVE: CASE EVENT DATE: 20240301
